FAERS Safety Report 5950366-6 (Version None)
Quarter: 2008Q4

REPORT INFORMATION
  Report Type: 
  Country: None (occurrence: None)
  Receive Date: 20081112
  Receipt Date: 20081105
  Transmission Date: 20090506
  Serious: Yes (Other)
  Sender: FDA-Public Use
  Company Number: PHHY2008BR27325

PATIENT
  Age: 77 Year
  Sex: Female

DRUGS (9)
  1. DIOVAN HCT [Suspect]
     Indication: HYPERTENSION
     Dosage: UNK
     Route: 048
  2. OMEPRAZOL ^ACYFABRIK^ [Concomitant]
     Indication: GASTRITIS
     Dosage: ONE TABLET EVERY MORNING
  3. PAROXETINE HCL [Concomitant]
     Indication: DEPRESSION
     Dosage: 1 TABLET PER DAY
     Route: 048
  4. POLYCARBOPHIL CALCIUM [Concomitant]
     Indication: GASTROINTESTINAL DISORDER
     Dosage: 2 TABLETS A DAY
     Route: 048
  5. MOTILIUM [Concomitant]
     Indication: AMERICAN TRYPANOSOMIASIS
     Dosage: 2 TABLETS / DAY, (1 TABLET BEFORE LUNCH AND ONE AFTER DINNER)
     Route: 048
  6. TICLID [Concomitant]
     Indication: ANEURYSM
     Dosage: ONE TABLET AT LUNCH
  7. TICLID [Concomitant]
     Indication: BLOOD CHOLESTEROL INCREASED
  8. SINVACOR [Concomitant]
     Indication: BLOOD TRIGLYCERIDES
     Dosage: HALF TABLET/DAY
     Route: 048
  9. RIVOTRIL [Concomitant]
     Indication: SLEEP DISORDER
     Dosage: 1 TABLET BEFORE SLEEP
     Route: 048

REACTIONS (6)
  - ABASIA [None]
  - ASTHENIA [None]
  - HYPERTENSION [None]
  - LABYRINTHITIS [None]
  - MALAISE [None]
  - VOMITING [None]
